FAERS Safety Report 6683037-1 (Version None)
Quarter: 2010Q2

REPORT INFORMATION
  Report Type: 
  Country: None (occurrence: None)
  Receive Date: 20100413
  Receipt Date: 20100329
  Transmission Date: 20101027
  Serious: Yes (Life-Threatening, Other)
  Sender: FDA-Public Use
  Company Number: AUR-APL-2010-00913

PATIENT
  Age: 48 Year
  Sex: Female

DRUGS (2)
  1. PAROXETINE HCL [Suspect]
     Dosage: ORAL
     Route: 048
  2. CLOZARIL [Suspect]
     Indication: SCHIZOPHRENIA
     Dosage: 300MG - ORAL
     Route: 048
     Dates: start: 19960103

REACTIONS (2)
  - LUNG NEOPLASM MALIGNANT [None]
  - TERMINAL STATE [None]
